FAERS Safety Report 5376350-1 (Version None)
Quarter: 2007Q2

REPORT INFORMATION
  Report Type: 
  Country: None (occurrence: None)
  Receive Date: 20070628
  Receipt Date: 20060608
  Transmission Date: 20071010
  Serious: Yes (Other)
  Sender: FDA-Public Use
  Company Number: 144727USA

PATIENT
  Age: 34 Year
  Sex: Female
  Weight: 131.5431 kg

DRUGS (6)
  1. NABUMETONE [Suspect]
     Indication: OPTIC NEURITIS
     Dosage: 1500 MG (750 MG, ONCE), ORAL
     Route: 048
     Dates: start: 20060222, end: 20060222
  2. INSULIN PUMP [Concomitant]
  3. VALSARTAN [Concomitant]
  4. LOTREL /01289101/ [Concomitant]
  5. AVANDIA [Concomitant]
  6. SIMVASTATIN [Concomitant]

REACTIONS (2)
  - DYSPNOEA [None]
  - RASH [None]
